FAERS Safety Report 10022497 (Version 1)
Quarter: 2014Q1

REPORT INFORMATION
  Report Type: Spontaneous
  Country: GB (occurrence: GB)
  Receive Date: 20140319
  Receipt Date: 20140319
  Transmission Date: 20141002
  Serious: Yes (Death)
  Sender: FDA-Public Use
  Company Number: GB-ACTAVISPR-2014-04986

PATIENT
  Age: 70 Year
  Sex: Female

DRUGS (5)
  1. PREDNISOLONE (UNKNOWN) [Suspect]
     Indication: PRODUCT USED FOR UNKNOWN INDICATION
     Dosage: 5 MG, UNK
     Route: 065
  2. MYCOPHENOLATE MOFETIL (UNKNOWN) [Suspect]
     Indication: PRODUCT USED FOR UNKNOWN INDICATION
     Dosage: 500 MG, UNK
     Route: 065
  3. NEORAL [Suspect]
     Indication: PRODUCT USED FOR UNKNOWN INDICATION
     Dosage: 25 MG, UNK
     Route: 065
  4. NEORAL [Suspect]
     Dosage: 50 MG, UNK
     Route: 065
  5. NEORAL [Suspect]
     Dosage: 100 MG, UNK
     Route: 065

REACTIONS (1)
  - Death [Fatal]
